FAERS Safety Report 14474564 (Version 2)
Quarter: 2018Q1

REPORT INFORMATION
  Report Type: Spontaneous
  Country: US (occurrence: US)
  Receive Date: 20180201
  Receipt Date: 20180223
  Transmission Date: 20180509
  Serious: Yes (Other)
  Sender: FDA-Public Use
  Company Number: US-BAYER-2018-020748

PATIENT
  Age: 51 Year
  Sex: Male

DRUGS (2)
  1. BETASERON [Suspect]
     Active Substance: INTERFERON BETA-1B
     Indication: MULTIPLE SCLEROSIS
     Dosage: 0.25 MG, QD
     Route: 048
     Dates: start: 20180126
  2. BETASERON [Suspect]
     Active Substance: INTERFERON BETA-1B
     Indication: MULTIPLE SCLEROSIS
     Dosage: 0.25 MG, QOD
     Route: 058
     Dates: start: 20180124

REACTIONS (8)
  - Hemiplegia [None]
  - Nocturnal dyspnoea [None]
  - Hypoaesthesia [Recovered/Resolved]
  - Pain of skin [None]
  - Chest discomfort [None]
  - Chills [Recovered/Resolved]
  - Chills [None]
  - Dyspnoea [None]

NARRATIVE: CASE EVENT DATE: 201801
